FAERS Safety Report 6963659-0 (Version None)
Quarter: 2010Q3

REPORT INFORMATION
  Report Type: 
  Country: None (occurrence: None)
  Receive Date: 20100830
  Receipt Date: 20100830
  Transmission Date: 20110219
  Serious: Yes (Hospitalization)
  Sender: FDA-Public Use
  Company Number: 2010SP038122

PATIENT
  Age: 77 Year
  Sex: Male
  Weight: 55 kg

DRUGS (11)
  1. TEMODAL [Suspect]
     Indication: BRAIN NEOPLASM
     Dosage: 120 MG;QD;PO, 240 MG;QD;PO
     Route: 048
     Dates: end: 20100419
  2. TEMODAL [Suspect]
     Indication: BRAIN NEOPLASM
     Dosage: 120 MG;QD;PO, 240 MG;QD;PO
     Route: 048
     Dates: start: 20100528, end: 20100601
  3. GASPORT-D (FAMOTIDINE) [Concomitant]
  4. DIOVAN [Concomitant]
  5. LASIX [Concomitant]
  6. EXCEGRAN [Concomitant]
  7. PREDNISOLONE [Concomitant]
  8. MAGNESIUM OXIDE [Concomitant]
  9. AMARYL [Concomitant]
  10. METFORMIN HCL [Concomitant]
  11. PRIMPERAN TAB [Concomitant]

REACTIONS (2)
  - INTERSTITIAL LUNG DISEASE [None]
  - PNEUMONIA [None]
